FAERS Safety Report 8643535 (Version 3)
Quarter: 2014Q1

REPORT INFORMATION
  Report Type: Spontaneous
  Country: US (occurrence: US)
  Receive Date: 20120629
  Receipt Date: 20140210
  Transmission Date: 20141002
  Serious: Yes (Other)
  Sender: FDA-Public Use
  Company Number: US-ELI_LILLY_AND_COMPANY-US201206007413

PATIENT
  Age: 66 Year
  Sex: Male

DRUGS (6)
  1. ILETIN BEEF/PORK REGULAR [Suspect]
     Indication: TYPE 1 DIABETES MELLITUS
     Dosage: UNK, UNKNOWN
     Route: 065
  2. HUMALOG LISPRO [Suspect]
     Indication: TYPE 1 DIABETES MELLITUS
     Dosage: UNK, UNKNOWN
     Route: 065
  3. HUMALOG LISPRO [Suspect]
     Dosage: 15 U, SINGLE
     Route: 065
  4. HUMALOG LISPRO [Suspect]
     Indication: TYPE 1 DIABETES MELLITUS
     Dosage: 4 U, TID
     Route: 065
     Dates: start: 2011
  5. INSULIN [Concomitant]
  6. LANTUS [Concomitant]
     Dosage: UNK, EACH MORNING

REACTIONS (10)
  - Convulsion [Recovered/Resolved]
  - Loss of consciousness [Recovered/Resolved]
  - Blood glucose increased [Unknown]
  - Incorrect dose administered [Unknown]
  - Wrong drug administered [Recovered/Resolved]
  - Product label confusion [Recovered/Resolved]
  - Adverse event [Recovered/Resolved]
  - Drug ineffective [Recovered/Resolved]
  - Blood glucose decreased [Recovered/Resolved]
  - Hearing impaired [Unknown]
